FAERS Safety Report 9130294 (Version 1)
Quarter: 2013Q1

REPORT INFORMATION
  Report Type: Spontaneous
  Country: GB (occurrence: GB)
  Receive Date: 20130228
  Receipt Date: 20130228
  Transmission Date: 20140127
  Serious: Yes (Hospitalization, Other)
  Sender: FDA-Public Use
  Company Number: PHFR2003GB02847

PATIENT
  Age: 53 Year
  Sex: Male

DRUGS (7)
  1. CLOZARIL [Suspect]
     Indication: SCHIZOPHRENIA
     Dosage: 700 MG, PER DAY
     Route: 048
     Dates: start: 19990126, end: 20030718
  2. LITHIUM [Concomitant]
     Dosage: 600 MG, DAILY
     Route: 048
  3. AMISULPRIDE [Concomitant]
     Dosage: 600 MG, DAILY
     Route: 048
  4. VENLAFAXINE [Concomitant]
     Dosage: 150 MG, DAILY
     Route: 048
  5. FRUSEMIDE [Concomitant]
     Dosage: 40 MG, DAILY
     Route: 048
  6. LANSOPRAZOLE [Concomitant]
     Dosage: 15 MG, DAILY
     Route: 048
  7. RAMIPRIL [Concomitant]
     Dosage: 2.5 MG, DAILY
     Route: 048

REACTIONS (10)
  - Agranulocytosis [Recovered/Resolved]
  - Respiratory disorder [Unknown]
  - Cough [Unknown]
  - White blood cell count increased [Recovered/Resolved]
  - Neutrophil count increased [Recovered/Resolved]
  - Confusional state [Unknown]
  - Listless [Unknown]
  - Aggression [Unknown]
  - Blood test abnormal [Unknown]
  - Fatigue [Unknown]
